FAERS Safety Report 11403482 (Version 1)
Quarter: 2015Q3

REPORT INFORMATION
  Report Type: Spontaneous
  Country: US (occurrence: None)
  Receive Date: 20150807
  Receipt Date: 20150807
  Transmission Date: 20151125
  Serious: No
  Sender: FDA-Public Use
  Company Number: 2015FE02176

PATIENT
  Age: 71 Year
  Sex: Female
  Weight: 70.7 kg

DRUGS (3)
  1. PREPOPIK [Suspect]
     Active Substance: ANHYDROUS CITRIC ACID\MAGNESIUM OXIDE\SODIUM PICOSULFATE
     Indication: BOWEL PREPARATION
     Dates: start: 20150622, end: 20150622
  2. SINGULAIR [Concomitant]
     Active Substance: MONTELUKAST SODIUM
  3. BABY ASPIRIN (ACETYLSALICYLIC ACID) [Concomitant]
     Active Substance: ASPIRIN

REACTIONS (3)
  - Proctalgia [None]
  - Gastrointestinal motility disorder [None]
  - Drug ineffective [None]

NARRATIVE: CASE EVENT DATE: 20150623
